FAERS Safety Report 7905987-8 (Version None)
Quarter: 2011Q4

REPORT INFORMATION
  Report Type: 
  Country: None (occurrence: None)
  Receive Date: 20111109
  Receipt Date: 20111109
  Transmission Date: 20120403
  Serious: Yes (Hospitalization, Other)
  Sender: FDA-Public Use
  Company Number: None

PATIENT
  Sex: Male
  Weight: 90.7194 kg

DRUGS (1)
  1. SPIRONOLACTONE AND HYDROCHLOROTHIAZIDE [Suspect]
     Indication: BLOOD PRESSURE MANAGEMENT
     Dosage: 25-25 1 TAB 1X DAILY ORAL
     Route: 048
     Dates: start: 20100801, end: 20110201

REACTIONS (3)
  - BREAST MASS [None]
  - BREAST ENLARGEMENT [None]
  - BREAST PAIN [None]
